FAERS Safety Report 16701339 (Version 1)
Quarter: 2019Q3

REPORT INFORMATION
  Report Type: Report from Study
  Country: NL (occurrence: NL)
  Receive Date: 20190814
  Receipt Date: 20190814
  Transmission Date: 20191004
  Serious: Yes (Hospitalization)
  Sender: FDA-Public Use
  Company Number: NL-ACTELION-A-CH2019-191425

PATIENT
  Age: 73 Year
  Sex: Female
  Weight: 104 kg

DRUGS (15)
  1. BUMETANIDE. [Concomitant]
     Active Substance: BUMETANIDE
     Indication: LEFT VENTRICULAR FAILURE
     Dosage: UNK
     Route: 048
     Dates: end: 20190702
  2. UPTRAVI [Suspect]
     Active Substance: SELEXIPAG
     Indication: PULMONARY ARTERIAL HYPERTENSION
     Dosage: 400 MCG, QD
     Route: 048
     Dates: start: 20190430
  3. PANTOPRAZOL [Concomitant]
     Active Substance: PANTOPRAZOLE SODIUM
     Indication: GASTROOESOPHAGEAL REFLUX DISEASE
     Dosage: UNK
     Route: 048
  4. TICAGRELOR. [Concomitant]
     Active Substance: TICAGRELOR
     Indication: CORONARY ARTERY BYPASS
     Dosage: UNK
     Route: 048
     Dates: start: 2017
  5. TADALAFIL. [Concomitant]
     Active Substance: TADALAFIL
     Dosage: 40 MG, QD
     Route: 048
     Dates: start: 20180514, end: 20180618
  6. METOPROLOL. [Concomitant]
     Active Substance: METOPROLOL
     Indication: MYOCARDIAL ISCHAEMIA
     Dosage: UNK
     Route: 048
     Dates: start: 2017
  7. UPTRAVI [Suspect]
     Active Substance: SELEXIPAG
     Dosage: 800 MCG
     Route: 048
     Dates: start: 20190702
  8. SILDENAFIL. [Concomitant]
     Active Substance: SILDENAFIL
     Dosage: 60 MG, QD
     Route: 048
     Dates: start: 20180723, end: 20181022
  9. METFORMIN [Concomitant]
     Active Substance: METFORMIN HYDROCHLORIDE
     Indication: TYPE 2 DIABETES MELLITUS
     Dosage: UNK
     Route: 048
  10. CALCIUM [Concomitant]
     Active Substance: CALCIUM
     Indication: CORONARY ARTERY BYPASS
     Dosage: UNK
     Route: 048
     Dates: start: 2017
  11. INSULIN [Concomitant]
     Active Substance: INSULIN NOS
     Indication: TYPE 2 DIABETES MELLITUS
     Dosage: UNK
     Route: 058
  12. FUROSEMIDE. [Concomitant]
     Active Substance: FUROSEMIDE
     Indication: LEFT VENTRICULAR FAILURE
     Dosage: UNK
     Route: 048
     Dates: start: 20190702
  13. OPSUMIT [Suspect]
     Active Substance: MACITENTAN
     Indication: PULMONARY ARTERIAL HYPERTENSION
     Dosage: 10 MG, QD
     Route: 048
     Dates: start: 20180502
  14. EZETIMIBE/SIMVASTATIN [Concomitant]
     Active Substance: EZETIMIBE\SIMVASTATIN
     Indication: BLOOD CHOLESTEROL INCREASED
     Dosage: UNK
     Route: 048
     Dates: start: 2017
  15. RIOCIGUAT. [Concomitant]
     Active Substance: RIOCIGUAT
     Dosage: 7.5 UNK
     Route: 048
     Dates: start: 20181121, end: 20190131

REACTIONS (10)
  - Disease progression [Unknown]
  - Melaena [Recovered/Resolved]
  - Haemoglobin decreased [Unknown]
  - Dyspnoea [Unknown]
  - Nausea [Unknown]
  - Eye pruritus [Unknown]
  - Anaemia [Unknown]
  - Diarrhoea [Unknown]
  - Packed red blood cell transfusion [Recovered/Resolved]
  - Pulmonary arterial hypertension [Unknown]

NARRATIVE: CASE EVENT DATE: 20190408
